FAERS Safety Report 10633507 (Version 2)
Quarter: 2014Q4

REPORT INFORMATION
  Report Type: Spontaneous
  Country: DE (occurrence: DE)
  Receive Date: 20141205
  Receipt Date: 20141229
  Transmission Date: 20150529
  Serious: Yes (Other)
  Sender: FDA-Public Use
  Company Number: DE-009507513-1411DEU012702

PATIENT
  Age: 47 Year
  Sex: Female
  Weight: 66 kg

DRUGS (11)
  1. ATORVASTATIN [Suspect]
     Active Substance: ATORVASTATIN
     Indication: CORONARY ARTERY DISEASE
     Dosage: UNK
     Route: 048
     Dates: start: 20140409, end: 20140815
  2. FLUVASTATIN SODIUM. [Suspect]
     Active Substance: FLUVASTATIN SODIUM
     Indication: CORONARY ARTERY DISEASE
     Dosage: UNK
     Route: 048
     Dates: start: 20140921, end: 20140924
  3. THYROXIN [Concomitant]
     Active Substance: LEVOTHYROXINE
     Indication: HYPOTHYROIDISM
     Dosage: 125 MICROGRAM, ONCE
     Route: 048
     Dates: start: 1995
  4. ASPIRIN. [Concomitant]
     Active Substance: ASPIRIN
     Indication: CORONARY ARTERY DISEASE
     Dosage: 100 MG, ONCE
     Route: 048
     Dates: start: 201404
  5. BISOPROLOL [Concomitant]
     Active Substance: BISOPROLOL
     Indication: CORONARY ARTERY DISEASE
  6. PRAVASTATIN SODIUM. [Suspect]
     Active Substance: PRAVASTATIN SODIUM
     Indication: CORONARY ARTERY DISEASE
     Dosage: UNK
     Route: 048
     Dates: start: 20141010, end: 20141023
  7. INEGY [Suspect]
     Active Substance: EZETIMIBE\SIMVASTATIN
     Indication: CORONARY ARTERY DISEASE
     Dosage: 0.5 TAB A DAY, TOTAL DAILY DOSE: 5MG/5MG
     Route: 048
     Dates: start: 20141024
  8. BISOPROLOL [Concomitant]
     Active Substance: BISOPROLOL
     Indication: POSITIVE VESSEL REMODELLING
     Dosage: 5 MG, BID
     Route: 048
     Dates: start: 201404
  9. SIMVASTATIN. [Suspect]
     Active Substance: SIMVASTATIN
     Indication: CORONARY ARTERY DISEASE
     Dosage: UNK
     Route: 048
     Dates: start: 20140816, end: 20140910
  10. TICAGRELOR [Concomitant]
     Active Substance: TICAGRELOR
     Indication: CORONARY ARTERY DISEASE
     Dosage: 90 MG, TWICE
     Route: 048
     Dates: start: 201404
  11. RAMIPRIL. [Concomitant]
     Active Substance: RAMIPRIL
     Indication: POSITIVE VESSEL REMODELLING
     Dosage: 2.5 MG, ONCE
     Route: 048
     Dates: start: 201404, end: 201411

REACTIONS (22)
  - Systemic lupus erythematosus [Not Recovered/Not Resolved]
  - Muscular weakness [Not Recovered/Not Resolved]
  - Muscle spasms [Not Recovered/Not Resolved]
  - Fatigue [Not Recovered/Not Resolved]
  - Movement disorder [Not Recovered/Not Resolved]
  - Gamma-glutamyltransferase increased [Not Recovered/Not Resolved]
  - Tremor [Not Recovered/Not Resolved]
  - Sleep disorder [Not Recovered/Not Resolved]
  - Alanine aminotransferase increased [Not Recovered/Not Resolved]
  - Arthralgia [Not Recovered/Not Resolved]
  - Paraesthesia [Not Recovered/Not Resolved]
  - Raynaud^s phenomenon [Not Recovered/Not Resolved]
  - Joint stiffness [Not Recovered/Not Resolved]
  - Acute myocardial infarction [Recovered/Resolved]
  - Depression [Not Recovered/Not Resolved]
  - Acute myocardial infarction [Not Recovered/Not Resolved]
  - Mobility decreased [Not Recovered/Not Resolved]
  - Myalgia [Not Recovered/Not Resolved]
  - Peroneal nerve palsy [Not Recovered/Not Resolved]
  - Aspartate aminotransferase increased [Not Recovered/Not Resolved]
  - Memory impairment [Not Recovered/Not Resolved]
  - Ulcer haemorrhage [Not Recovered/Not Resolved]

NARRATIVE: CASE EVENT DATE: 2014
